FAERS Safety Report 10900976 (Version 1)
Quarter: 2015Q1

REPORT INFORMATION
  Report Type: Spontaneous
  Country: US (occurrence: None)
  Receive Date: 20150303
  Receipt Date: 20150303
  Transmission Date: 20150721
  Serious: Yes (Hospitalization)
  Sender: FDA-Public Use
  Company Number: US-2015TEC0000005

PATIENT
  Age: 56 Year
  Sex: Female

DRUGS (2)
  1. HEPARIN [Suspect]
     Active Substance: HEPARIN SODIUM
     Indication: SALPINGO-OOPHORECTOMY
     Route: 058
  2. HEPARIN [Suspect]
     Active Substance: HEPARIN SODIUM
     Indication: HYSTERECTOMY
     Route: 058

REACTIONS (8)
  - Cardio-respiratory arrest [None]
  - Dyspnoea [None]
  - Blood pressure systolic decreased [None]
  - Anaphylactoid reaction [None]
  - Heparin-induced thrombocytopenia [None]
  - Flushing [None]
  - Pulmonary embolism [None]
  - Transient global amnesia [None]
